FAERS Safety Report 12403607 (Version 2)
Quarter: 2018Q3

REPORT INFORMATION
  Report Type: Spontaneous
  Country: US (occurrence: US)
  Receive Date: 20160525
  Receipt Date: 20180718
  Transmission Date: 20181010
  Serious: Yes (Other)
  Sender: FDA-Public Use
  Company Number: US-DRREDDYS-USA/USA/16/0080069

PATIENT
  Age: 47 Year
  Sex: Female

DRUGS (1)
  1. MINOCYCLINE HYDROCHLORIDE. [Suspect]
     Active Substance: MINOCYCLINE HYDROCHLORIDE
     Indication: ACNE
     Route: 065

REACTIONS (6)
  - Antineutrophil cytoplasmic antibody negative [Recovering/Resolving]
  - Neuropathy peripheral [Recovered/Resolved]
  - C-reactive protein increased [Recovered/Resolved]
  - Mononeuropathy multiplex [Recovering/Resolving]
  - Vasculitis [Recovering/Resolving]
  - Antiphospholipid antibodies positive [Recovering/Resolving]
